FAERS Safety Report 20941744 (Version 2)
Quarter: 2022Q4

REPORT INFORMATION
  Report Type: Spontaneous
  Country: DE (occurrence: DE)
  Receive Date: 20220610
  Receipt Date: 20221222
  Transmission Date: 20230113
  Serious: Yes (Other)
  Sender: FDA-Public Use
  Company Number: DE-BRISTOL-MYERS SQUIBB COMPANY-2022-055670

PATIENT
  Age: 68 Year
  Sex: Female

DRUGS (1)
  1. OPDIVO [Suspect]
     Active Substance: NIVOLUMAB
     Indication: Non-small cell lung cancer stage IV
     Route: 042
     Dates: start: 201902, end: 202004

REACTIONS (2)
  - Immune-mediated thyroiditis [Recovered/Resolved]
  - Polyserositis [Recovered/Resolved]

NARRATIVE: CASE EVENT DATE: 20190701
